FAERS Safety Report 18490133 (Version 3)
Quarter: 2021Q2

REPORT INFORMATION
  Report Type: Spontaneous
  Country: DE (occurrence: DE)
  Receive Date: 20201111
  Receipt Date: 20210527
  Transmission Date: 20210717
  Serious: Yes (Other)
  Sender: FDA-Public Use
  Company Number: NVSC2020DE296777

PATIENT
  Sex: Male

DRUGS (11)
  1. VALSARTAN ? 1 A PHARMA PLUS [Suspect]
     Active Substance: HYDROCHLOROTHIAZIDE\VALSARTAN
     Indication: HYPERTENSION
     Dosage: 1 DF, QD (12.5/160 MG) MORNING
     Route: 065
     Dates: start: 20170531, end: 20180807
  2. VALSARTAN ACTAVIS COMP [Concomitant]
     Active Substance: HYDROCHLOROTHIAZIDE\VALSARTAN
     Dosage: 1 DF, QD (160 MG/12.5 MG) MORNING
     Route: 065
     Dates: end: 20180807
  3. VALSARTAN ACTAVIS COMP [Concomitant]
     Active Substance: HYDROCHLOROTHIAZIDE\VALSARTAN
     Dosage: 1 DF, QD (160 MG/12.5 MG) MORNING
     Route: 065
     Dates: start: 201609, end: 201612
  4. CITALOPRAM [Concomitant]
     Active Substance: CITALOPRAM HYDROBROMIDE
     Indication: PRODUCT USED FOR UNKNOWN INDICATION
     Dosage: UNK
     Route: 048
  5. LYRICA [Concomitant]
     Active Substance: PREGABALIN
     Indication: PRODUCT USED FOR UNKNOWN INDICATION
     Dosage: UNK
     Route: 048
  6. VALSACOR [Concomitant]
     Active Substance: VALSARTAN
     Indication: HYPERTENSION
     Dosage: 1 DF, QD (160 MG/12.5 MG) MORNING
     Route: 065
     Dates: start: 20141209, end: 201501
  7. VALSACOR [Concomitant]
     Active Substance: VALSARTAN
     Dosage: 1 DF, QD (160 MG/12.5 MG) MORNING
     Route: 065
     Dates: start: 201612, end: 201705
  8. VALSARTAN ? 1 A PHARMA PLUS [Suspect]
     Active Substance: HYDROCHLOROTHIAZIDE\VALSARTAN
     Dosage: 1 DF, QD (12.5/160 MG) MORNING
     Route: 065
  9. VALSACOR [Concomitant]
     Active Substance: VALSARTAN
     Dosage: 1 DF, QD (160 MG/12.5 MG) MORNING
     Route: 065
     Dates: start: 201606, end: 201609
  10. VALSARTAN ACTAVIS COMP [Concomitant]
     Active Substance: HYDROCHLOROTHIAZIDE\VALSARTAN
     Indication: HYPERTENSION
     Dosage: 1 DF, QD (160 MG/12.5 MG) MORNING
     Route: 065
     Dates: start: 201501, end: 201606
  11. TRAZODON [Concomitant]
     Active Substance: TRAZODONE HYDROCHLORIDE
     Indication: PRODUCT USED FOR UNKNOWN INDICATION
     Dosage: UNK
     Route: 048

REACTIONS (10)
  - Headache [Unknown]
  - Injury [Unknown]
  - Sleep disorder [Unknown]
  - Dizziness [Unknown]
  - Staphylococcal infection [Unknown]
  - Product contamination chemical [Unknown]
  - Neoplasm malignant [Unknown]
  - Illness [Unknown]
  - Anxiety disorder [Unknown]
  - Emotional distress [Unknown]

NARRATIVE: CASE EVENT DATE: 2017
